FAERS Safety Report 19658274 (Version 1)
Quarter: 2021Q3

REPORT INFORMATION
  Report Type: Report from Study
  Country: IT (occurrence: IT)
  Receive Date: 20210804
  Receipt Date: 20210804
  Transmission Date: 20211014
  Serious: Yes (Hospitalization)
  Sender: FDA-Public Use
  Company Number: NVSC2021IT171154

PATIENT
  Sex: Female

DRUGS (2)
  1. OMNITROPE [Suspect]
     Active Substance: SOMATROPIN
     Dosage: 0.4 MG, QD (STRENGTH: 5MG)
     Route: 065
  2. OMNITROPE [Suspect]
     Active Substance: SOMATROPIN
     Indication: BLOOD GLUCOSE ABNORMAL
     Dosage: 0.4 MG, QD (STRENGTH: 15MG)
     Route: 065
     Dates: start: 20181106

REACTIONS (5)
  - Product use in unapproved indication [Unknown]
  - Hypoglycaemia [Unknown]
  - Expired product administered [Unknown]
  - Dehydration [Unknown]
  - Loss of consciousness [Unknown]
